FAERS Safety Report 8156660-5 (Version None)
Quarter: 2012Q1

REPORT INFORMATION
  Report Type: 
  Country: None (occurrence: None)
  Receive Date: 20120222
  Receipt Date: 20120215
  Transmission Date: 20120608
  Serious: Yes (Other)
  Sender: FDA-Public Use
  Company Number: US-BAYER-2012-017010

PATIENT
  Age: 39 Year
  Sex: Female
  Weight: 68.03 kg

DRUGS (2)
  1. YASMIN [Suspect]
     Indication: PRODUCT USED FOR UNKNOWN INDICATION
     Dosage: UNK
     Dates: start: 20070621, end: 20091203
  2. YASMIN [Suspect]
     Dosage: UNK
     Dates: start: 20090410, end: 20091203

REACTIONS (5)
  - OEDEMA PERIPHERAL [None]
  - DEEP VEIN THROMBOSIS [None]
  - JOINT SWELLING [None]
  - ARTHRALGIA [None]
  - PAIN IN EXTREMITY [None]
